FAERS Safety Report 13638160 (Version 2)
Quarter: 2017Q3

REPORT INFORMATION
  Report Type: Spontaneous
  Country: TR (occurrence: TR)
  Receive Date: 20170609
  Receipt Date: 20170913
  Transmission Date: 20171127
  Serious: Yes (Hospitalization, Other)
  Sender: FDA-Public Use
  Company Number: TR-JNJFOC-20170606904

PATIENT
  Age: 78 Year
  Sex: Female

DRUGS (2)
  1. XARELTO [Suspect]
     Active Substance: RIVAROXABAN
     Indication: CEREBROVASCULAR ACCIDENT PROPHYLAXIS
     Route: 048
  2. XARELTO [Suspect]
     Active Substance: RIVAROXABAN
     Indication: ATRIAL FIBRILLATION
     Route: 048

REACTIONS (8)
  - Gait disturbance [Unknown]
  - Asthenia [Unknown]
  - Dizziness [Unknown]
  - Rash generalised [Unknown]
  - Balance disorder [Unknown]
  - Burning sensation [Unknown]
  - Cerebral disorder [Unknown]
  - Initial insomnia [Unknown]
